FAERS Safety Report 4865466-1 (Version None)
Quarter: 2005Q4

REPORT INFORMATION
  Report Type: 
  Country: None (occurrence: None)
  Receive Date: 20051223
  Receipt Date: 20051128
  Transmission Date: 20060501
  Serious: Yes (Hospitalization)
  Sender: FDA-Public Use
  Company Number: GB-ROCHE-426583

PATIENT
  Age: 51 Year
  Sex: Female

DRUGS (2)
  1. CAPECITABINE [Suspect]
     Indication: RECTAL CANCER
     Route: 048
     Dates: start: 20050926
  2. IRINOTECAN [Suspect]
     Indication: RECTAL CANCER
     Dosage: AS PER PROTOCOL
     Route: 042

REACTIONS (3)
  - ANOREXIA [None]
  - BLOOD ALBUMIN DECREASED [None]
  - SMALL INTESTINAL PERFORATION [None]
